FAERS Safety Report 14411629 (Version 1)
Quarter: 2018Q1

REPORT INFORMATION
  Report Type: Spontaneous
  Country: JP (occurrence: JP)
  Receive Date: 20180119
  Receipt Date: 20180119
  Transmission Date: 20180509
  Serious: Yes (Other)
  Sender: FDA-Public Use
  Company Number: JP-009507513-1801JPN001046J

PATIENT
  Sex: Male

DRUGS (6)
  1. URIEF [Concomitant]
     Active Substance: SILODOSIN
     Dosage: UNK
     Route: 048
  2. AVOLVE [Concomitant]
     Active Substance: DUTASTERIDE
     Dosage: UNK
  3. JANUVIA [Suspect]
     Active Substance: SITAGLIPTIN PHOSPHATE
     Dosage: DOSE WAS DOUBLED
     Route: 048
  4. UBRETID [Concomitant]
     Active Substance: DISTIGMINE BROMIDE
     Dosage: UNK
     Route: 048
  5. AVOLVE [Concomitant]
     Active Substance: DUTASTERIDE
     Dosage: UNK
     Route: 048
  6. JANUVIA [Suspect]
     Active Substance: SITAGLIPTIN PHOSPHATE
     Dosage: UNK
     Route: 048
     Dates: start: 2012

REACTIONS (5)
  - Feeling cold [Unknown]
  - Salivary hypersecretion [Unknown]
  - Dyspnoea [Unknown]
  - Drug ineffective [Unknown]
  - Cerebral haemorrhage [Unknown]
